FAERS Safety Report 16241292 (Version 1)
Quarter: 2019Q2

REPORT INFORMATION
  Report Type: Report from Study
  Country: None (occurrence: FR)
  Receive Date: 20190426
  Receipt Date: 20190426
  Transmission Date: 20190711
  Serious: Yes (Other)
  Sender: FDA-Public Use
  Company Number: FR-ABBVIE-19S-056-2757369-00

PATIENT
  Age: 41 Year
  Sex: Male

DRUGS (1)
  1. DUODOPA [Suspect]
     Active Substance: CARBIDOPA\LEVODOPA
     Indication: PARKINSON^S DISEASE
     Dosage: MD ??:3 ML,  CFR DURING THE DAY??: 4.2 ML/H, AND CFR DURING THE NIGHT: 2.5 ML/H.
     Route: 050
     Dates: start: 20190327

REACTIONS (10)
  - Staphylococcal abscess [Unknown]
  - Device kink [Unknown]
  - Freezing phenomenon [Unknown]
  - Incontinence [Not Recovered/Not Resolved]
  - Speech disorder [Not Recovered/Not Resolved]
  - Somnolence [Unknown]
  - Bradykinesia [Unknown]
  - Stoma site reaction [Unknown]
  - Stoma site haemorrhage [Unknown]
  - Stoma site pain [Unknown]

NARRATIVE: CASE EVENT DATE: 2019
